FAERS Safety Report 10920224 (Version 2)
Quarter: 2015Q1

REPORT INFORMATION
  Report Type: Not Available
  Country: DE (occurrence: DE)
  Receive Date: 20150317
  Receipt Date: 20150325
  Transmission Date: 20150721
  Serious: No
  Sender: FDA-Public Use
  Company Number: DE-LUPIN PHARMACEUTICALS INC.-2015-00347

PATIENT
  Sex: Male

DRUGS (1)
  1. ZIPRASIDON-HORMOSAN 20 MG [Suspect]
     Active Substance: ZIPRASIDONE HYDROCHLORIDE
     Indication: ENERGY INCREASED
     Route: 065
     Dates: start: 2015

REACTIONS (2)
  - Sleep disorder [Not Recovered/Not Resolved]
  - Intentional product misuse [Unknown]
